FAERS Safety Report 8802293 (Version 1)
Quarter: 2012Q4

REPORT INFORMATION
  Report Type: Report from Study
  Country: HU (occurrence: HU)
  Receive Date: 20120921
  Receipt Date: 20120921
  Transmission Date: 20130627
  Serious: Yes (Hospitalization, Other)
  Sender: FDA-Public Use
  Company Number: HU-ROCHE-1126450

PATIENT
  Sex: Female

DRUGS (1)
  1. XELODA [Suspect]
     Indication: PRODUCT USED FOR UNKNOWN INDICATION
     Dosage: dose:2x4,
     Route: 048
     Dates: start: 20091021, end: 201006

REACTIONS (3)
  - Gastrointestinal inflammation [Recovered/Resolved]
  - Thrombosis [Recovered/Resolved]
  - Upper limb fracture [Recovered/Resolved]
